FAERS Safety Report 8547112-9 (Version None)
Quarter: 2012Q3

REPORT INFORMATION
  Report Type: 
  Country: None (occurrence: None)
  Receive Date: 20120727
  Receipt Date: 20120215
  Transmission Date: 20120928
  Serious: No
  Sender: FDA-Public Use
  Company Number: US-ASTRAZENECA-2012SE10645

PATIENT
  Age: 52 Year
  Sex: Male

DRUGS (8)
  1. TOPROL ER [Concomitant]
     Route: 048
  2. FLUOXETINE HCL [Concomitant]
  3. TOVIAZ [Concomitant]
  4. SEROQUEL [Suspect]
     Indication: DEPRESSION
     Route: 048
  5. MICARDIS [Concomitant]
  6. DEXALANT [Concomitant]
  7. ZANTAC [Concomitant]
  8. TRADJENTA [Concomitant]

REACTIONS (2)
  - BLOOD GLUCOSE INCREASED [None]
  - DRUG PRESCRIBING ERROR [None]
